FAERS Safety Report 7385164-2 (Version None)
Quarter: 2011Q1

REPORT INFORMATION
  Report Type: 
  Country: None (occurrence: None)
  Receive Date: 20110330
  Receipt Date: 20110324
  Transmission Date: 20110831
  Serious: Yes (Other)
  Sender: FDA-Public Use
  Company Number: JP-SANOFI-AVENTIS-2011SA007080

PATIENT
  Age: 84 Year
  Sex: Female
  Weight: 45 kg

DRUGS (10)
  1. CANDESARTAN [Concomitant]
     Route: 048
     Dates: start: 20101024
  2. AMLODIPINE [Concomitant]
     Indication: HYPERTENSION
     Route: 048
     Dates: start: 20101027
  3. PLAVIX [Suspect]
     Route: 048
     Dates: start: 20101024, end: 20101024
  4. CONTRAST MEDIA [Suspect]
     Indication: ARTERIOGRAM CORONARY
     Route: 051
     Dates: start: 20101024, end: 20101024
  5. ASPIRIN [Concomitant]
     Route: 048
     Dates: start: 20101024
  6. ATORVASTATIN CALCIUM [Concomitant]
     Indication: PROPHYLAXIS
     Route: 048
     Dates: start: 20101024
  7. CILOSTAZOL [Concomitant]
     Indication: ARTERIOSCLEROSIS OBLITERANS
     Route: 048
     Dates: start: 20101117
  8. PLAVIX [Suspect]
     Route: 048
     Dates: start: 20101025
  9. SARPOGRELATE [Concomitant]
     Indication: ARTERIOSCLEROSIS OBLITERANS
     Route: 048
     Dates: start: 20101111
  10. FUROSEMIDE [Concomitant]
     Indication: HYPERTENSION
     Route: 048
     Dates: start: 20101024

REACTIONS (1)
  - RENAL FAILURE [None]
